FAERS Safety Report 21993135 (Version 1)
Quarter: 2023Q1

REPORT INFORMATION
  Report Type: 
  Country: None (occurrence: CA)
  Receive Date: 20230215
  Receipt Date: 20230215
  Transmission Date: 20230417
  Serious: Yes (Other)
  Sender: FDA-Public Use
  Company Number: None

PATIENT
  Age: 71 Year
  Sex: Female

DRUGS (1)
  1. BIMATOPROST [Suspect]
     Active Substance: BIMATOPROST

REACTIONS (6)
  - Skin hyperpigmentation [Recovered/Resolved]
  - Eye irritation [Recovered/Resolved]
  - Prostaglandin analogue periorbitopathy [Recovered/Resolved]
  - Dermatochalasis [Recovered/Resolved]
  - Malignant melanoma in situ [Recovered/Resolved]
  - Malignant melanoma in situ [Recovered/Resolved]
